FAERS Safety Report 14570483 (Version 1)
Quarter: 2018Q1

REPORT INFORMATION
  Report Type: Spontaneous
  Country: US (occurrence: US)
  Receive Date: 20180226
  Receipt Date: 20180226
  Transmission Date: 20180509
  Serious: Yes (Other)
  Sender: FDA-Public Use
  Company Number: US-ACCORD-063663

PATIENT
  Age: 68 Year
  Sex: Female

DRUGS (1)
  1. ZOLEDRONIC ACID [Suspect]
     Active Substance: ZOLEDRONIC ACID
     Indication: OSTEOPOROSIS
     Dosage: 4 MG OF ZOLEDRONATE
     Route: 042

REACTIONS (5)
  - Iridocyclitis [Recovered/Resolved]
  - Parophthalmia [Recovered/Resolved]
  - Corneal endotheliitis [Recovered/Resolved]
  - Hyphaema [Recovered/Resolved]
  - Scleritis [Recovered/Resolved]
